FAERS Safety Report 6530672-7 (Version None)
Quarter: 2010Q1

REPORT INFORMATION
  Report Type: 
  Country: None (occurrence: None)
  Receive Date: 20100108
  Receipt Date: 20081124
  Transmission Date: 20100710
  Serious: Yes (Disabling)
  Sender: FDA-Public Use
  Company Number: A0756212A

PATIENT
  Age: 57 Year
  Sex: Female
  Weight: 68.6 kg

DRUGS (2)
  1. LOVAZA [Suspect]
     Dosage: 2G PER DAY
     Route: 048
     Dates: start: 20081021, end: 20081028
  2. LISINOPRIL [Concomitant]
     Indication: HYPERTENSION
     Dosage: 10MG PER DAY
     Route: 048
     Dates: start: 20010101

REACTIONS (2)
  - NAUSEA [None]
  - VOMITING [None]
